FAERS Safety Report 5373390-3 (Version None)
Quarter: 2007Q2

REPORT INFORMATION
  Report Type: 
  Country: None (occurrence: None)
  Receive Date: 20070628
  Receipt Date: 20070620
  Transmission Date: 20071010
  Serious: Yes (Death, Hospitalization)
  Sender: FDA-Public Use
  Company Number: BE-BRISTOL-MYERS SQUIBB COMPANY-12889937

PATIENT
  Age: 68 Year
  Sex: Female

DRUGS (9)
  1. ENDOXAN [Suspect]
     Indication: CHRONIC LYMPHOCYTIC LEUKAEMIA
     Dosage: DAYS 1 TO 3; TX START 01MAR04
     Route: 042
     Dates: start: 20040721, end: 20040721
  2. FLUDARABINE PHOSPHATE [Suspect]
     Indication: CHRONIC LYMPHOCYTIC LEUKAEMIA
     Dosage: DAYS 1 TO 3; TX START 01MAR04
     Route: 042
     Dates: start: 20040721, end: 20040721
  3. MEDROL [Concomitant]
  4. FUROSEMIDE [Concomitant]
  5. GLUCOPHAGE [Concomitant]
  6. TENORMIN [Concomitant]
  7. MINIPRESS [Concomitant]
  8. DAFALGAN [Concomitant]
  9. INSULIN HUMAN [Concomitant]

REACTIONS (5)
  - BALANCE DISORDER [None]
  - CARDIAC ARREST [None]
  - DYSPRAXIA [None]
  - MENTAL STATUS CHANGES [None]
  - NEUROLOGICAL EXAMINATION ABNORMAL [None]
